FAERS Safety Report 13255957 (Version 1)
Quarter: 2017Q1

REPORT INFORMATION
  Report Type: Spontaneous
  Country: US (occurrence: US)
  Receive Date: 20170218
  Receipt Date: 20170218
  Transmission Date: 20170428
  Serious: Yes (Disabling)
  Sender: FDA-Public Use
  Company Number: None

PATIENT
  Age: 27 Year
  Sex: Male
  Weight: 65 kg

DRUGS (16)
  1. FLUOROQUINOLONE [Concomitant]
     Active Substance: UNSPECIFIED INGREDIENT
  2. MAGNESIUM 500 WITH B6 [Concomitant]
  3. L GLUTHAMINE [Concomitant]
  4. NAC [Concomitant]
  5. CIFLOX [Suspect]
     Active Substance: CIPROFLOXACIN
     Indication: URINARY TRACT INFECTION
     Dosage: ?          QUANTITY:12 TABLET(S);?
     Route: 048
     Dates: start: 20161205, end: 20161212
  6. CIFLOX [Suspect]
     Active Substance: CIPROFLOXACIN
     Indication: PROSTATITIS
     Dosage: ?          QUANTITY:12 TABLET(S);?
     Route: 048
     Dates: start: 20161205, end: 20161212
  7. PROBIOTIC [Concomitant]
     Active Substance: PROBIOTICS NOS
  8. IMMUNITY COMPLEX PILL [Concomitant]
  9. FULL COMPLETE VITAMIN [Concomitant]
  10. NADH [Concomitant]
     Active Substance: NADH
  11. BARDANA [Concomitant]
  12. ACIDE R ALPHA LIPOIC [Concomitant]
  13. ORIGAN ESSENTIAL OIL BY MOUTH DILUATE [Concomitant]
  14. IRON [Concomitant]
     Active Substance: IRON
  15. VITAMIN D [Concomitant]
     Active Substance: CHOLECALCIFEROL
  16. NICOTINAMIDE RIBOSIDE NAD [Concomitant]

REACTIONS (24)
  - Diarrhoea [None]
  - Salivary gland mass [None]
  - Arthralgia [None]
  - Vision blurred [None]
  - Vitreous floaters [None]
  - Aphthous ulcer [None]
  - Genital ulceration [None]
  - Depression [None]
  - Fungal infection [None]
  - Hypertension [None]
  - Thyroiditis [None]
  - Parotitis [None]
  - Headache [None]
  - Tendonitis [None]
  - Myalgia [None]
  - Dysgeusia [None]
  - Respiratory disorder [None]
  - Cardiac disorder [None]
  - Fatigue [None]
  - Asthenia [None]
  - Abdominal pain [None]
  - Rash [None]
  - Lymphadenopathy [None]
  - Hypotension [None]

NARRATIVE: CASE EVENT DATE: 20161212
